FAERS Safety Report 8510223-8 (Version None)
Quarter: 2012Q3

REPORT INFORMATION
  Report Type: 
  Country: None (occurrence: None)
  Receive Date: 20120713
  Receipt Date: 20120705
  Transmission Date: 20120928
  Serious: Yes (Other)
  Sender: FDA-Public Use
  Company Number: FR-VERTEX PHARMACEUTICALS INC.-000000000000000696

PATIENT
  Sex: Male
  Weight: 88 kg

DRUGS (11)
  1. ISENTRESS [Concomitant]
     Indication: HIV INFECTION
     Route: 048
     Dates: start: 20120103, end: 20120423
  2. PEGASYS [Concomitant]
     Indication: HEPATITIS C
     Route: 058
     Dates: start: 20120212, end: 20120425
  3. NEXIUM [Concomitant]
     Route: 048
     Dates: start: 20000513
  4. ENALAPRIL MALEATE AND HYDROCHLOROTHIAZIDE [Concomitant]
  5. COPEGUS [Concomitant]
     Indication: HEPATITIS C
     Route: 048
     Dates: start: 20120212, end: 20120425
  6. REYATAZ [Concomitant]
     Indication: HIV INFECTION
     Route: 048
     Dates: start: 20120103, end: 20120423
  7. NORVIR [Concomitant]
     Indication: HIV INFECTION
     Route: 048
     Dates: start: 20120103, end: 20120423
  8. GABAPENTIN [Concomitant]
     Indication: NEUROPATHY PERIPHERAL
     Route: 048
  9. INCIVO [Suspect]
     Indication: HEPATITIS C
     Dosage: DOSAGE FORM: TABLET
     Route: 048
     Dates: start: 20120212, end: 20120425
  10. ENALAPRIL MALEATE AND HYDROCHLOROTHIAZIDE [Concomitant]
     Route: 048
     Dates: start: 20070821
  11. LEVOTHYROXINE SODIUM [Concomitant]
     Route: 048
     Dates: start: 20051004

REACTIONS (10)
  - RASH PUSTULAR [None]
  - DIZZINESS [None]
  - FATIGUE [None]
  - PRURITUS [None]
  - RASH GENERALISED [None]
  - DYSPNOEA EXERTIONAL [None]
  - NAUSEA [None]
  - OFF LABEL USE [None]
  - DECREASED APPETITE [None]
  - ANAEMIA [None]
